FAERS Safety Report 18511620 (Version 4)
Quarter: 2021Q2

REPORT INFORMATION
  Report Type: Report from Study
  Country: None (occurrence: FR)
  Receive Date: 20201117
  Receipt Date: 20210422
  Transmission Date: 20210717
  Serious: Yes (Death, Life-Threatening, Other)
  Sender: FDA-Public Use
  Company Number: FR-BIOVITRUM-2020FR6409

PATIENT
  Age: 51 Year
  Sex: Male

DRUGS (12)
  1. KINERET [Suspect]
     Active Substance: ANAKINRA
     Indication: COVID-19
     Route: 042
     Dates: start: 20200409, end: 20200415
  2. KINERET [Suspect]
     Active Substance: ANAKINRA
     Route: 042
     Dates: start: 20200415, end: 20200416
  3. CIPROFLOXACINE [Concomitant]
     Active Substance: CIPROFLOXACIN
  4. FLUDROCORTISONE [Concomitant]
     Active Substance: FLUDROCORTISONE
  5. COLIMYCINE [Concomitant]
  6. VANCOMYCIN [Concomitant]
     Active Substance: VANCOMYCIN
     Indication: PNEUMONIA BACTERIAL
     Route: 042
     Dates: start: 20200421, end: 20200422
  7. HEPARIN [Concomitant]
     Active Substance: HEPARIN SODIUM
  8. AMOXICILLIN/CLAVULANIC ACID [Concomitant]
     Active Substance: AMOXICILLIN\CLAVULANIC ACID
  9. MEROPENEM. [Concomitant]
     Active Substance: MEROPENEM
     Indication: PNEUMONIA BACTERIAL
     Route: 042
     Dates: start: 20200421, end: 20200422
  10. HYDROCORTISONE. [Concomitant]
     Active Substance: HYDROCORTISONE
  11. KINERET [Suspect]
     Active Substance: ANAKINRA
     Route: 042
     Dates: start: 20200416, end: 20200416
  12. CEFEPIME [Concomitant]
     Active Substance: CEFEPIME HYDROCHLORIDE

REACTIONS (7)
  - Pneumonia pneumococcal [Recovered/Resolved]
  - Pneumonia bacterial [Fatal]
  - Klebsiella infection [Fatal]
  - Septic shock [Recovered/Resolved]
  - Multiple organ dysfunction syndrome [Fatal]
  - Staphylococcal sepsis [Recovered/Resolved]
  - Renal failure [Not Recovered/Not Resolved]

NARRATIVE: CASE EVENT DATE: 20200418
